FAERS Safety Report 8538378-X (Version None)
Quarter: 2012Q3

REPORT INFORMATION
  Report Type: 
  Country: None (occurrence: None)
  Receive Date: 20120726
  Receipt Date: 20120725
  Transmission Date: 20120928
  Serious: No
  Sender: FDA-Public Use
  Company Number: US-PFIZER INC-2012138433

PATIENT
  Sex: Male
  Weight: 122 kg

DRUGS (4)
  1. SIMVASTATIN [Interacting]
     Indication: BLOOD CHOLESTEROL ABNORMAL
     Dosage: 80 MG, DAILY
  2. LISINOPRIL [Interacting]
     Indication: BLOOD PRESSURE ABNORMAL
     Dosage: 10 MG, DAILY
  3. LYRICA [Suspect]
     Dosage: 50 MG, DAILY
     Route: 048
     Dates: start: 20120606, end: 20120606
  4. METOPROLOL [Interacting]
     Indication: BLOOD PRESSURE ABNORMAL
     Dosage: 50 MG, DAILY

REACTIONS (7)
  - HEAD DISCOMFORT [None]
  - DIZZINESS [None]
  - NASOPHARYNGITIS [None]
  - INFLUENZA LIKE ILLNESS [None]
  - NAUSEA [None]
  - DRUG INTERACTION [None]
  - FATIGUE [None]
